FAERS Safety Report 4449527-7 (Version None)
Quarter: 2004Q3

REPORT INFORMATION
  Report Type: 
  Country: None (occurrence: None)
  Receive Date: 20040914
  Receipt Date: 20040618
  Transmission Date: 20050211
  Serious: Yes (Other)
  Sender: FDA-Public Use
  Company Number: 200411974EU

PATIENT
  Age: 70 Year
  Sex: Male

DRUGS (9)
  1. LANTUS [Suspect]
     Indication: DIABETES MELLITUS
     Route: 058
     Dates: start: 20031016, end: 20040510
  2. ATROVENT [Concomitant]
     Indication: MUCOUS MEMBRANE DISORDER
  3. LOMUDAL [Concomitant]
  4. BEROTEC [Concomitant]
  5. ZADITEN [Concomitant]
  6. DYTENZIDE [Concomitant]
  7. PILO-2 [Concomitant]
  8. PROPINE [Concomitant]
  9. OPHTHALMOLOGICALS [Concomitant]

REACTIONS (10)
  - ASTHMA [None]
  - CALCINOSIS [None]
  - CONDITION AGGRAVATED [None]
  - CONJUNCTIVITIS [None]
  - DRUG HYPERSENSITIVITY [None]
  - ECHOGRAPHY ABNORMAL [None]
  - HYPERSENSITIVITY [None]
  - REACTION TO DRUG EXCIPIENT [None]
  - RHINITIS [None]
  - THERAPY NON-RESPONDER [None]
